FAERS Safety Report 16429416 (Version 3)
Quarter: 2019Q2

REPORT INFORMATION
  Report Type: Report from Study
  Country: None (occurrence: FR)
  Receive Date: 20190614
  Receipt Date: 20190625
  Transmission Date: 20190711
  Serious: Yes (Hospitalization)
  Sender: FDA-Public Use
  Company Number: FR-ABBVIE-19S-056-2820498-00

PATIENT
  Age: 56 Year
  Sex: Male

DRUGS (1)
  1. DUODOPA [Suspect]
     Active Substance: CARBIDOPA\LEVODOPA
     Indication: PARKINSON^S DISEASE
     Route: 050
     Dates: start: 20181212

REACTIONS (5)
  - Spinal osteoarthritis [Unknown]
  - Gait inability [Unknown]
  - Pain in extremity [Unknown]
  - Gastrointestinal stoma complication [Unknown]
  - Mobility decreased [Unknown]

NARRATIVE: CASE EVENT DATE: 20190613
